FAERS Safety Report 6122227-3 (Version None)
Quarter: 2009Q1

REPORT INFORMATION
  Report Type: 
  Country: None (occurrence: None)
  Receive Date: 20090316
  Receipt Date: 20090304
  Transmission Date: 20090719
  Serious: Yes (Hospitalization)
  Sender: FDA-Public Use
  Company Number: 1000005091

PATIENT
  Age: 72 Year
  Sex: Female

DRUGS (8)
  1. NEBIVOLOL HCL [Suspect]
     Indication: HYPERTENSION
     Dosage: ORAL
     Route: 048
     Dates: start: 20070401, end: 20070901
  2. ENBREL [Suspect]
     Indication: RHEUMATOID ARTHRITIS
     Dosage: 7.1429 MG (50 MG,1 IN 1 WK)
     Dates: start: 20050101, end: 20070901
  3. CORTANCYL [Concomitant]
  4. OROCAL D(3) [Concomitant]
  5. SIMVASTATIN [Concomitant]
  6. KETOPROFEN [Concomitant]
  7. HYZAAR (HYDROCHLOROTHIAZIDE/LOSARTAN) [Concomitant]
  8. LEVOTHYROXINE SODIUM [Concomitant]

REACTIONS (5)
  - AGRANULOCYTOSIS [None]
  - ANTIBODY TEST POSITIVE [None]
  - BIOPSY BONE MARROW ABNORMAL [None]
  - CONDITION AGGRAVATED [None]
  - NEUTROPENIA [None]
